FAERS Safety Report 6132188-9 (Version None)
Quarter: 2009Q1

REPORT INFORMATION
  Report Type: 
  Country: None (occurrence: None)
  Receive Date: 20090325
  Receipt Date: 20090320
  Transmission Date: 20090719
  Serious: Yes (Other)
  Sender: FDA-Public Use
  Company Number: B0566496A

PATIENT
  Age: 41 Year
  Sex: Female

DRUGS (5)
  1. TELZIR [Suspect]
     Indication: HIV INFECTION
     Route: 048
  2. INVIRASE [Suspect]
     Indication: HIV INFECTION
     Route: 048
  3. NORVIR [Suspect]
     Indication: HIV INFECTION
     Route: 048
  4. KALETRA [Suspect]
     Indication: HIV INFECTION
     Route: 048
  5. TRUVADA [Suspect]
     Indication: HIV INFECTION
     Route: 048

REACTIONS (2)
  - HEPATOTOXICITY [None]
  - NERVOUS SYSTEM DISORDER [None]
